FAERS Safety Report 16275211 (Version 1)
Quarter: 2019Q2

REPORT INFORMATION
  Report Type: Report from Study
  Country: BR (occurrence: BR)
  Receive Date: 20190506
  Receipt Date: 20190506
  Transmission Date: 20190711
  Serious: Yes (Death, Hospitalization, Other)
  Sender: FDA-Public Use
  Company Number: BR-JNJFOC-20190502303

PATIENT
  Age: 76 Year
  Sex: Male

DRUGS (3)
  1. SIMVASTATIN. [Concomitant]
     Active Substance: SIMVASTATIN
     Route: 065
  2. ATENOLOL. [Concomitant]
     Active Substance: ATENOLOL
     Route: 065
  3. SIMPONI [Suspect]
     Active Substance: GOLIMUMAB
     Indication: RHEUMATOID ARTHRITIS
     Route: 058
     Dates: end: 201901

REACTIONS (8)
  - Haemorrhage [Unknown]
  - Bladder disorder [Unknown]
  - Arrhythmia [Unknown]
  - Weight decreased [Unknown]
  - Renal failure [Fatal]
  - Cerebrovascular accident [Unknown]
  - Myocardial infarction [Fatal]
  - Blood urine present [Unknown]

NARRATIVE: CASE EVENT DATE: 20190315
